FAERS Safety Report 9949511 (Version 6)
Quarter: 2015Q1

REPORT INFORMATION
  Report Type: Spontaneous
  Country: US (occurrence: US)
  Receive Date: 20140304
  Receipt Date: 20150220
  Transmission Date: 20150721
  Serious: Yes (Death, Hospitalization, Other)
  Sender: FDA-Public Use
  Company Number: US-MERCK-1402USA013696

PATIENT
  Sex: Male
  Weight: 98.41 kg

DRUGS (2)
  1. JANUVIA [Suspect]
     Active Substance: SITAGLIPTIN PHOSPHATE
     Indication: TYPE 2 DIABETES MELLITUS
     Dosage: 100 MG, QD
     Route: 048
     Dates: start: 20101004, end: 20130130
  2. VITAMINS (UNSPECIFIED) [Concomitant]
     Active Substance: VITAMINS
     Dosage: DAILY
     Route: 048
     Dates: start: 1990, end: 20130901

REACTIONS (47)
  - Chronic kidney disease [Not Recovered/Not Resolved]
  - Chest pain [Unknown]
  - Hypogonadism [Unknown]
  - Thrombocytopenia [Unknown]
  - Joint swelling [Unknown]
  - Cholelithiasis [Unknown]
  - Retroperitoneal lymphadenopathy [Unknown]
  - Limb injury [Recovering/Resolving]
  - Metastases to liver [Fatal]
  - Neuropathy peripheral [Unknown]
  - Renal atrophy [Unknown]
  - Hyperhidrosis [Unknown]
  - Cardiopulmonary failure [Fatal]
  - Hepatic failure [Fatal]
  - Cervical radiculopathy [Unknown]
  - Joint stiffness [Unknown]
  - Biopsy liver [Unknown]
  - Vertebral lesion [Unknown]
  - Ascites [Unknown]
  - Localised infection [Recovering/Resolving]
  - Toothache [Unknown]
  - Dyspnoea [Unknown]
  - Splenomegaly [Unknown]
  - Urinary incontinence [Unknown]
  - Balance disorder [Unknown]
  - Hyperhidrosis [Unknown]
  - Hyperkalaemia [Unknown]
  - Neutropenia [Unknown]
  - Fluid overload [Unknown]
  - Constipation [Unknown]
  - Pancreatic carcinoma metastatic [Fatal]
  - Metastases to bone [Unknown]
  - Vision blurred [Unknown]
  - Pleural effusion [Unknown]
  - Cachexia [Unknown]
  - Oedema peripheral [Unknown]
  - Cough [Unknown]
  - Hypothyroidism [Unknown]
  - Peripheral nerve injury [Unknown]
  - Faeces discoloured [Unknown]
  - Renal cyst [Unknown]
  - Carbon dioxide decreased [Unknown]
  - Diabetes mellitus inadequate control [Unknown]
  - Anaemia [Unknown]
  - Extrasystoles [Unknown]
  - Nail operation [Unknown]
  - Radiotherapy [Unknown]

NARRATIVE: CASE EVENT DATE: 20121001
